FAERS Safety Report 14901839 (Version 5)
Quarter: 2019Q1

REPORT INFORMATION
  Report Type: Report from Study
  Country: TN (occurrence: TN)
  Receive Date: 20180516
  Receipt Date: 20190215
  Transmission Date: 20190417
  Serious: Yes (Hospitalization)
  Sender: FDA-Public Use
  Company Number: PHHY2018TN008046

PATIENT
  Age: 59 Year
  Sex: Male

DRUGS (1)
  1. TASIGNA [Suspect]
     Active Substance: NILOTINIB
     Indication: CHRONIC MYELOID LEUKAEMIA
     Dosage: 400 MG, BID
     Route: 048
     Dates: start: 20140101

REACTIONS (7)
  - Hypersensitivity [Unknown]
  - Influenza [Recovered/Resolved]
  - Calculus urinary [Recovering/Resolving]
  - Urinary tract disorder [Unknown]
  - Urticaria [Recovering/Resolving]
  - Oropharyngeal pain [Not Recovered/Not Resolved]
  - Erythema [Not Recovered/Not Resolved]

NARRATIVE: CASE EVENT DATE: 2017
